FAERS Safety Report 10649621 (Version 1)
Quarter: 2014Q4

REPORT INFORMATION
  Report Type: Spontaneous
  Country: BR (occurrence: BR)
  Receive Date: 20141212
  Receipt Date: 20141212
  Transmission Date: 20150529
  Serious: Yes (Other)
  Sender: FDA-Public Use
  Company Number: BR-ASTRAZENECA-2014SE94808

PATIENT
  Age: 24350 Day
  Sex: Female
  Weight: 83 kg

DRUGS (5)
  1. ATENOLOL. [Suspect]
     Active Substance: ATENOLOL
     Indication: HEART RATE ABNORMAL
     Route: 048
     Dates: end: 201408
  2. BROMAZEPAM [Concomitant]
     Active Substance: BROMAZEPAM
     Route: 048
  3. LOSARTAN POTASSIUM. [Concomitant]
     Active Substance: LOSARTAN POTASSIUM
     Indication: HEART RATE ABNORMAL
     Route: 048
     Dates: start: 201408
  4. SELOZOK [Suspect]
     Active Substance: METOPROLOL SUCCINATE
     Indication: HEART RATE ABNORMAL
     Route: 048
     Dates: start: 201408
  5. LERIN (TETRAHYDROZOLINE HYDROCHLORIDE) [Interacting]
     Active Substance: TETRAHYDROZOLINE HYDROCHLORIDE
     Indication: DRY EYE
     Dosage: AS REQUIRED
     Route: 050

REACTIONS (4)
  - Off label use [Not Recovered/Not Resolved]
  - Heart rate increased [Recovered/Resolved]
  - Dry eye [Unknown]
  - Drug interaction [Recovered/Resolved]

NARRATIVE: CASE EVENT DATE: 201408
